FAERS Safety Report 18290767 (Version 1)
Quarter: 2020Q3

REPORT INFORMATION
  Report Type: Spontaneous
  Country: US (occurrence: US)
  Receive Date: 20200922
  Receipt Date: 20200922
  Transmission Date: 20201103
  Serious: No
  Sender: FDA-Public Use
  Company Number: US-ALVOGEN-2020-ALVOGEN-113978

PATIENT
  Age: 32 Year
  Sex: Male

DRUGS (1)
  1. GRALISE [Suspect]
     Active Substance: GABAPENTIN
     Indication: PRODUCT USED FOR UNKNOWN INDICATION
     Dosage: STRENGTH: 600 MG, QD, DAILY
     Route: 048

REACTIONS (3)
  - Hypoaesthesia [Unknown]
  - Nerve compression [Unknown]
  - Back pain [Unknown]

NARRATIVE: CASE EVENT DATE: 201809
